FAERS Safety Report 16351229 (Version 1)
Quarter: 2019Q2

REPORT INFORMATION
  Report Type: Spontaneous
  Country: GB (occurrence: GB)
  Receive Date: 20190524
  Receipt Date: 20190524
  Transmission Date: 20190711
  Serious: Yes (Other)
  Sender: FDA-Public Use
  Company Number: GB-TEVA-2019-GB-1053622

PATIENT
  Age: 33 Year
  Sex: Female
  Weight: 67 kg

DRUGS (15)
  1. MEBEVERINE HYDROCHLORIDE [Concomitant]
     Active Substance: MEBEVERINE HYDROCHLORIDE
     Indication: IRRITABLE BOWEL SYNDROME
     Dates: start: 20181116
  2. LANSOPRAZOLE. [Concomitant]
     Active Substance: LANSOPRAZOLE
     Indication: GASTROINTESTINAL DISORDER PROPHYLAXIS
     Dosage: MORNING
     Dates: start: 20181116
  3. ISPAGHULA EXTRACT\PSYLLIUM [Concomitant]
     Active Substance: HERBALS\PLANTAGO OVATA SEED\PLANTAGO SEED
     Dates: start: 20181116
  4. DOXYCYCLINE. [Suspect]
     Active Substance: DOXYCYCLINE
     Dosage: TAKE TWO IMMEDIATELY THEN ONE ONCE A DAY.
     Route: 048
     Dates: start: 20190410, end: 20190412
  5. CLARITHROMYCIN. [Concomitant]
     Active Substance: CLARITHROMYCIN
     Indication: ANTIBIOTIC THERAPY
     Dates: start: 20190412, end: 20190417
  6. CLOTRIMAZOLE. [Concomitant]
     Active Substance: CLOTRIMAZOLE
     Dosage: AT NIGHT.
     Route: 067
     Dates: start: 20190410, end: 20190417
  7. MIRTAZAPINE. [Concomitant]
     Active Substance: MIRTAZAPINE
     Indication: DEPRESSED MOOD
     Dosage: NIGHT
     Dates: start: 20181116
  8. LAXIDO [Concomitant]
     Active Substance: POLYETHYLENE GLYCOL 3350\POTASSIUM CHLORIDE\SODIUM BICARBONATE\SODIUM CHLORIDE
     Dosage: TAKE ONE ONCE OR TWICE A DAY.
     Dates: start: 20181116
  9. MST CONTINUS [Concomitant]
     Active Substance: MORPHINE SULFATE
     Dates: start: 20181116
  10. FLIXONASE [Concomitant]
     Active Substance: FLUTICASONE PROPIONATE
     Dosage: USE 1-2 TIMES/DAY
     Dates: start: 20190410, end: 20190415
  11. CLOTRIMAZOLE. [Concomitant]
     Active Substance: CLOTRIMAZOLE
     Dosage: APPLY CREAM 2-3 TIMES A DAY
     Route: 067
     Dates: start: 20190410, end: 20190417
  12. NAPROXEN. [Concomitant]
     Active Substance: NAPROXEN
     Dosage: 1-2 TWICE DAILY
     Dates: start: 20181116
  13. DOCUSATE SODIUM. [Concomitant]
     Active Substance: DOCUSATE SODIUM
     Dosage: TAKE ONE OR TWO THREE TIMES DAILY.
     Dates: start: 20181116
  14. GABAPENTIN. [Concomitant]
     Active Substance: GABAPENTIN
     Indication: PROPHYLAXIS
     Dates: start: 20181116
  15. FOSTAIR [Concomitant]
     Active Substance: BECLOMETHASONE\FORMOTEROL
     Dosage: PUFFS
     Route: 055
     Dates: start: 20181116

REACTIONS (1)
  - Rash macular [Recovered/Resolved]

NARRATIVE: CASE EVENT DATE: 20190411
